FAERS Safety Report 21737714 (Version 1)
Quarter: 2022Q4

REPORT INFORMATION
  Report Type: Spontaneous
  Country: FR (occurrence: FR)
  Receive Date: 20221216
  Receipt Date: 20221216
  Transmission Date: 20230112
  Serious: Yes (Hospitalization, Other)
  Sender: FDA-Public Use
  Company Number: FR-AFSSAPS-NY20222976

PATIENT
  Age: 70 Year
  Sex: Female

DRUGS (2)
  1. CARBOPLATIN [Suspect]
     Active Substance: CARBOPLATIN
     Indication: Serous cystadenocarcinoma ovary
     Dosage: UNK (7TH ADMINISTRATION)
     Route: 042
     Dates: start: 20221110, end: 20221110
  2. TAXOL [Concomitant]
     Active Substance: PACLITAXEL
     Indication: Serous cystadenocarcinoma ovary
     Dosage: UNK (7TH ADMINISTRATION)
     Route: 042

REACTIONS (1)
  - Type II hypersensitivity [Recovered/Resolved]

NARRATIVE: CASE EVENT DATE: 20221110
